FAERS Safety Report 13729799 (Version 2)
Quarter: 2017Q3

REPORT INFORMATION
  Report Type: Spontaneous
  Country: US (occurrence: US)
  Receive Date: 20170707
  Receipt Date: 20170922
  Transmission Date: 20171127
  Serious: Yes (Hospitalization)
  Sender: FDA-Public Use
  Company Number: US-JNJFOC-20170505452

PATIENT
  Age: 47 Year
  Sex: Female

DRUGS (12)
  1. XARELTO [Suspect]
     Active Substance: RIVAROXABAN
     Indication: PULMONARY EMBOLISM
     Dosage: 15 MG 20 MG
     Route: 048
     Dates: start: 20150521, end: 20151103
  2. XARELTO [Suspect]
     Active Substance: RIVAROXABAN
     Indication: PULMONARY EMBOLISM
     Route: 048
     Dates: end: 201512
  3. XARELTO [Suspect]
     Active Substance: RIVAROXABAN
     Indication: CEREBROVASCULAR ACCIDENT
     Route: 048
     Dates: start: 201511, end: 20151120
  4. XARELTO [Suspect]
     Active Substance: RIVAROXABAN
     Indication: ATRIAL SEPTAL DEFECT
     Route: 048
     Dates: end: 201512
  5. XARELTO [Suspect]
     Active Substance: RIVAROXABAN
     Indication: DEEP VEIN THROMBOSIS
     Route: 048
     Dates: end: 201512
  6. XARELTO [Suspect]
     Active Substance: RIVAROXABAN
     Indication: CEREBROVASCULAR ACCIDENT
     Route: 048
     Dates: end: 201512
  7. XARELTO [Suspect]
     Active Substance: RIVAROXABAN
     Indication: CEREBROVASCULAR ACCIDENT
     Dosage: 15 MG 20 MG
     Route: 048
     Dates: start: 20150521, end: 20151103
  8. XARELTO [Suspect]
     Active Substance: RIVAROXABAN
     Indication: PULMONARY EMBOLISM
     Route: 048
     Dates: start: 201511, end: 20151120
  9. XARELTO [Suspect]
     Active Substance: RIVAROXABAN
     Indication: ATRIAL SEPTAL DEFECT
     Route: 048
     Dates: start: 201511, end: 20151120
  10. XARELTO [Suspect]
     Active Substance: RIVAROXABAN
     Indication: DEEP VEIN THROMBOSIS
     Route: 048
     Dates: start: 201511, end: 20151120
  11. XARELTO [Suspect]
     Active Substance: RIVAROXABAN
     Indication: DEEP VEIN THROMBOSIS
     Dosage: 15 MG 20 MG
     Route: 048
     Dates: start: 20150521, end: 20151103
  12. XARELTO [Suspect]
     Active Substance: RIVAROXABAN
     Indication: ATRIAL SEPTAL DEFECT
     Dosage: 15 MG 20 MG
     Route: 048
     Dates: start: 20150521, end: 20151103

REACTIONS (1)
  - Dysfunctional uterine bleeding [Recovering/Resolving]

NARRATIVE: CASE EVENT DATE: 20151102
